FAERS Safety Report 6221935-3 (Version None)
Quarter: 2009Q2

REPORT INFORMATION
  Report Type: 
  Country: None (occurrence: None)
  Receive Date: 20090609
  Receipt Date: 20090609
  Transmission Date: 20091009
  Serious: Yes (Hospitalization)
  Sender: FDA-Public Use
  Company Number: None

PATIENT
  Age: 64 Year
  Sex: Male
  Weight: 79.2 kg

DRUGS (2)
  1. CLOPIDOGREL [Suspect]
     Indication: VASCULAR OPERATION
     Dosage: 75 MG EVERY DAY PO
     Route: 048
     Dates: start: 20090424, end: 20090605
  2. ASPIRIN [Suspect]
     Dosage: 325 MG EVERY DAY PO
     Route: 048
     Dates: start: 20090424, end: 20090605

REACTIONS (4)
  - BLOOD PRESSURE SYSTOLIC INCREASED [None]
  - HAEMORRHAGE [None]
  - SUBDURAL HAEMATOMA [None]
  - UNRESPONSIVE TO STIMULI [None]
